FAERS Safety Report 8841173 (Version 1)
Quarter: 2012Q4

REPORT INFORMATION
  Report Type: 
  Country: US (occurrence: US)
  Receive Date: 20121015
  Receipt Date: 20121015
  Transmission Date: 20130627
  Serious: Yes (Other)
  Sender: FDA-Public Use
  Company Number: US-PFIZER INC-2012254862

PATIENT
  Age: 66 Year
  Sex: Female
  Weight: 72.56 kg

DRUGS (3)
  1. LYRICA [Suspect]
     Indication: NEUROPATHY PERIPHERAL
     Dosage: 200 mg, 2x/day
     Dates: start: 2006
  2. AMITRIPTYLINE [Concomitant]
     Indication: PARAESTHESIA
     Dosage: 25 mg, daily
  3. AMITRIPTYLINE [Concomitant]
     Indication: LIMB DISCOMFORT

REACTIONS (2)
  - Amnesia [Not Recovered/Not Resolved]
  - Weight increased [Unknown]
